FAERS Safety Report 5778667-5 (Version None)
Quarter: 2008Q2

REPORT INFORMATION
  Report Type: 
  Country: None (occurrence: None)
  Receive Date: 20080619
  Receipt Date: 20080611
  Transmission Date: 20081010
  Serious: Yes (Hospitalization)
  Sender: FDA-Public Use
  Company Number: B0518584A

PATIENT
  Age: 51 Year
  Sex: Female
  Weight: 52 kg

DRUGS (3)
  1. LAPATINIB [Suspect]
     Dosage: 1250MG PER DAY
     Route: 048
     Dates: start: 20080410
  2. CAPECITABINE [Suspect]
     Dosage: 2500MG PER DAY
     Route: 048
     Dates: start: 20080219
  3. RADIOTHERAPY [Concomitant]
     Indication: DRUG USE FOR UNKNOWN INDICATION

REACTIONS (2)
  - CELLULITIS [None]
  - PYREXIA [None]
